FAERS Safety Report 25887597 (Version 1)
Quarter: 2025Q4

REPORT INFORMATION
  Report Type: Spontaneous
  Country: EU (occurrence: EU)
  Receive Date: 20251007
  Receipt Date: 20251007
  Transmission Date: 20260117
  Serious: Yes (Death, Other)
  Sender: ABBVIE
  Company Number: EU-ABBVIE-6484309

PATIENT
  Age: 82 Year
  Sex: Male

DRUGS (13)
  1. VENETOCLAX [Suspect]
     Active Substance: VENETOCLAX
     Indication: Product used for unknown indication
     Dosage: D1-D14
     Route: 048
     Dates: start: 202201
  2. VENETOCLAX [Suspect]
     Active Substance: VENETOCLAX
     Indication: Product used for unknown indication
     Dosage: DISCONTINUED CYCLE III FROM DAY 6
     Route: 048
  3. VENETOCLAX [Suspect]
     Active Substance: VENETOCLAX
     Indication: Product used for unknown indication
     Route: 048
     Dates: start: 202204
  4. VENETOCLAX [Suspect]
     Active Substance: VENETOCLAX
     Indication: Product used for unknown indication
     Dosage: D1-D14
     Route: 048
     Dates: start: 202205, end: 202208
  5. VENETOCLAX [Suspect]
     Active Substance: VENETOCLAX
     Indication: Product used for unknown indication
     Dosage: D1-D10
     Route: 048
     Dates: start: 202208
  6. VENETOCLAX [Suspect]
     Active Substance: VENETOCLAX
     Indication: Product used for unknown indication
     Dosage: D1-D10
     Route: 048
     Dates: start: 202209, end: 202307
  7. VENETOCLAX [Suspect]
     Active Substance: VENETOCLAX
     Indication: Product used for unknown indication
     Route: 048
     Dates: start: 202307, end: 202311
  8. AZACITIDINE [Suspect]
     Active Substance: AZACITIDINE
     Indication: Product used for unknown indication
     Dosage: 75 MG/M? D1-D7
     Route: 065
     Dates: start: 202201
  9. AZACITIDINE [Suspect]
     Active Substance: AZACITIDINE
     Indication: Product used for unknown indication
     Route: 065
     Dates: start: 202203
  10. AZACITIDINE [Suspect]
     Active Substance: AZACITIDINE
     Indication: Product used for unknown indication
     Route: 065
     Dates: start: 202204
  11. AZACITIDINE [Suspect]
     Active Substance: AZACITIDINE
     Indication: Product used for unknown indication
     Dosage: 50%
     Route: 065
     Dates: start: 202205, end: 202208
  12. AZACITIDINE [Suspect]
     Active Substance: AZACITIDINE
     Indication: Product used for unknown indication
     Dosage: 50%
     Route: 065
     Dates: start: 202208
  13. AZACITIDINE [Suspect]
     Active Substance: AZACITIDINE
     Indication: Product used for unknown indication
     Dosage: 50%
     Route: 065
     Dates: start: 202209, end: 202307

REACTIONS (12)
  - Death [Fatal]
  - Neutropenia [Unknown]
  - Subdural haematoma [Unknown]
  - Gingival hypertrophy [Unknown]
  - Hyperleukocytosis [Unknown]
  - Hypertension [Unknown]
  - Thrombocytopenia [Recovered/Resolved]
  - Thrombocytopenia [Recovered/Resolved]
  - Thrombocytopenia [Recovered/Resolved]
  - Thrombocytopenia [Recovered/Resolved]
  - Minimal residual disease [Unknown]
  - Atrial flutter [Unknown]

NARRATIVE: CASE EVENT DATE: 20220101
